FAERS Safety Report 17800670 (Version 1)
Quarter: 2020Q2

REPORT INFORMATION
  Report Type: Spontaneous
  Country: CN (occurrence: CN)
  Receive Date: 20200519
  Receipt Date: 20200519
  Transmission Date: 20200714
  Serious: Yes (Hospitalization, Other)
  Sender: FDA-Public Use
  Company Number: CN-BAXTER-2020BAX010147

PATIENT
  Age: 51 Year
  Sex: Male
  Weight: 68.5 kg

DRUGS (11)
  1. 0.9% SODIUM CHLORIDE INJECTION [Suspect]
     Active Substance: SODIUM CHLORIDE
     Dosage: VINCRISTINE  + 0.9% NS (ONCE IN 7 DAYS)
     Route: 041
     Dates: start: 20200415, end: 20200415
  2. 0.9% SODIUM CHLORIDE INJECTION [Suspect]
     Active Substance: SODIUM CHLORIDE
     Dosage: DAUNORUBICIN HYDROCHLORIDE + 0.9% NS
     Route: 041
     Dates: start: 20200415, end: 20200417
  3. VINCRISTINE SULFATE. [Suspect]
     Active Substance: VINCRISTINE SULFATE
     Indication: B-CELL TYPE ACUTE LEUKAEMIA
     Route: 065
  4. ENDOXAN [Suspect]
     Active Substance: CYCLOPHOSPHAMIDE
     Indication: B-CELL TYPE ACUTE LEUKAEMIA
     Route: 065
  5. VINCRISTINE SULFATE. [Suspect]
     Active Substance: VINCRISTINE SULFATE
     Dosage: VINCRISTINE + 0.9% NS (ONCE IN 7 DAYS)
     Route: 041
     Dates: start: 20200415, end: 20200415
  6. VINCRISTINE SULFATE. [Suspect]
     Active Substance: VINCRISTINE SULFATE
     Dosage: VINCRISTINE + 0.9% NS (ONCE IN 7 DAYS)
     Route: 041
     Dates: start: 20200422, end: 20200422
  7. ENDOXAN [Suspect]
     Active Substance: CYCLOPHOSPHAMIDE
     Dosage: ENDOXAN + 0.9% NS
     Route: 041
     Dates: start: 20200415, end: 20200415
  8. 0.9% SODIUM CHLORIDE INJECTION [Suspect]
     Active Substance: SODIUM CHLORIDE
     Indication: MEDICATION DILUTION
     Dosage: ENDOXAN + 0.9% NS
     Route: 041
     Dates: start: 20200415, end: 20200415
  9. DAUNORUBICIN HYDROCHLORIDE. [Suspect]
     Active Substance: DAUNORUBICIN HYDROCHLORIDE
     Dosage: DAUNORUBICIN + 0.9% NS
     Route: 041
     Dates: start: 20200415, end: 20200417
  10. 0.9% SODIUM CHLORIDE INJECTION [Suspect]
     Active Substance: SODIUM CHLORIDE
     Dosage: VINCRISTINE  + 0.9% NS (ONCE IN 7 DAYS)
     Route: 041
     Dates: start: 20200422, end: 20200422
  11. DAUNORUBICIN HYDROCHLORIDE. [Suspect]
     Active Substance: DAUNORUBICIN HYDROCHLORIDE
     Indication: B-CELL TYPE ACUTE LEUKAEMIA
     Route: 065

REACTIONS (2)
  - White blood cell count decreased [Recovered/Resolved]
  - Leukopenia [Recovered/Resolved]

NARRATIVE: CASE EVENT DATE: 20200424
